FAERS Safety Report 6260947-0 (Version None)
Quarter: 2009Q3

REPORT INFORMATION
  Report Type: 
  Country: None (occurrence: None)
  Receive Date: 20090709
  Receipt Date: 20090706
  Transmission Date: 20100115
  Serious: Yes (Hospitalization)
  Sender: FDA-Public Use
  Company Number: KR-BRISTOL-MYERS SQUIBB COMPANY-14691042

PATIENT
  Age: 21 Year
  Sex: Male

DRUGS (2)
  1. ABATACEPT [Suspect]
     Indication: COLITIS ULCERATIVE
     Dosage: 15APR08-CONT/100ML/IV
     Route: 042
     Dates: start: 20080123
  2. PENTASA [Concomitant]
     Dosage: SR
     Dates: start: 20070719

REACTIONS (1)
  - COLITIS ULCERATIVE [None]
